FAERS Safety Report 15127901 (Version 2)
Quarter: 2018Q3

REPORT INFORMATION
  Report Type: Spontaneous
  Country: MX (occurrence: MX)
  Receive Date: 20180710
  Receipt Date: 20180712
  Transmission Date: 20181010
  Serious: Yes (Hospitalization)
  Sender: FDA-Public Use
  Company Number: MX-BIOMARINAP-MX-2018-118944

PATIENT
  Age: 4 Year
  Sex: Male
  Weight: 14.5 kg

DRUGS (2)
  1. ALDURAZYME [Suspect]
     Active Substance: LARONIDASE
     Indication: MUCOPOLYSACCHARIDOSIS I
     Dosage: 2 DF, QW
     Route: 041
     Dates: start: 201505
  2. ALDURAZYME [Suspect]
     Active Substance: LARONIDASE
     Dosage: UNK
     Route: 041
     Dates: start: 201704

REACTIONS (4)
  - Tachycardia [Recovering/Resolving]
  - Hypertension [Recovering/Resolving]
  - Headache [Recovering/Resolving]
  - Pyrexia [Recovering/Resolving]
